FAERS Safety Report 6678616-1 (Version None)
Quarter: 2010Q2

REPORT INFORMATION
  Report Type: 
  Country: None (occurrence: None)
  Receive Date: 20100413
  Receipt Date: 20100405
  Transmission Date: 20101027
  Serious: Yes (Hospitalization)
  Sender: FDA-Public Use
  Company Number: US-JNJFOC-20100401975

PATIENT
  Sex: Female
  Weight: 77.11 kg

DRUGS (9)
  1. FENTANYL CITRATE [Suspect]
     Indication: BACK PAIN
     Route: 062
  2. FENTANYL CITRATE [Suspect]
     Route: 062
  3. FENTANYL CITRATE [Suspect]
     Route: 062
  4. LIPITOR [Concomitant]
     Indication: BLOOD CHOLESTEROL INCREASED
     Route: 048
  5. UNKNOWN MEDICATION [Concomitant]
     Indication: DRUG USE FOR UNKNOWN INDICATION
     Route: 048
  6. DEPAKOTE [Concomitant]
     Indication: CONVULSION
     Dosage: 1 IN AM
     Route: 048
  7. DEPAKOTE [Concomitant]
     Dosage: 1 IN PM
     Route: 048
  8. WELLBUTRIN [Concomitant]
     Indication: DEPRESSION
     Dosage: 100 MG 2 TABLETS ONCE DAILY IN PM
     Route: 048
  9. WELLBUTRIN [Concomitant]
     Dosage: 100 MG 1 TABLET ONCE DAILY IN AM
     Route: 048

REACTIONS (3)
  - DRUG INEFFECTIVE [None]
  - INADEQUATE ANALGESIA [None]
  - MYOCARDIAL INFARCTION [None]
